FAERS Safety Report 10060605 (Version 2)
Quarter: 2014Q2

REPORT INFORMATION
  Report Type: Spontaneous
  Country: DE (occurrence: DE)
  Receive Date: 20140404
  Receipt Date: 20140416
  Transmission Date: 20141212
  Serious: No
  Sender: FDA-Public Use
  Company Number: DE-ELI_LILLY_AND_COMPANY-DE201403009269

PATIENT
  Age: 33 Year
  Sex: Female

DRUGS (7)
  1. EFIENT [Suspect]
     Indication: STENT PLACEMENT
     Dosage: 10 MG, QD
     Route: 048
     Dates: start: 20131211
  2. CLEXANE [Concomitant]
     Dosage: 0.4 ML, UNK
  3. ASS [Concomitant]
     Dosage: 100 MG, UNK
  4. INSPRA                             /01613601/ [Concomitant]
     Dosage: 25 MG, UNK
  5. RAMIPRIL [Concomitant]
     Dosage: 2.5 MG, UNK
  6. NEXIUM                             /01479302/ [Concomitant]
  7. SIMVAHEXAL [Concomitant]

REACTIONS (1)
  - Sinusitis [Recovered/Resolved]
